FAERS Safety Report 5648770-9 (Version None)
Quarter: 2008Q1

REPORT INFORMATION
  Report Type: 
  Country: None (occurrence: None)
  Receive Date: 20080229
  Receipt Date: 20080215
  Transmission Date: 20080703
  Serious: Yes (Hospitalization)
  Sender: FDA-Public Use
  Company Number: 230007J08FRA

PATIENT
  Age: 34 Year
  Sex: Female
  Weight: 48 kg

DRUGS (4)
  1. REBIF [Suspect]
     Dates: end: 20080208
  2. IBUPROFEN [Concomitant]
  3. ACETAMINOPHEN [Concomitant]
  4. ARNICA MONTANA [Concomitant]

REACTIONS (9)
  - HYPERAESTHESIA [None]
  - INJECTION SITE ERYTHEMA [None]
  - INJECTION SITE INDURATION [None]
  - INJECTION SITE PAIN [None]
  - INJECTION SITE REACTION [None]
  - INJECTION SITE SWELLING [None]
  - PLATELET COUNT DECREASED [None]
  - SKIN PLAQUE [None]
  - WRONG TECHNIQUE IN DRUG USAGE PROCESS [None]
